FAERS Safety Report 7973098-1 (Version None)
Quarter: 2011Q4

REPORT INFORMATION
  Report Type: 
  Country: None (occurrence: None)
  Receive Date: 20111213
  Receipt Date: 20111205
  Transmission Date: 20120403
  Serious: Yes (Hospitalization)
  Sender: FDA-Public Use
  Company Number: JP-ASTELLAS-2011JP007924

PATIENT
  Sex: Male
  Weight: 35.6 kg

DRUGS (10)
  1. PROGRAF [Interacting]
     Indication: IMMUNOSUPPRESSION
     Dosage: 3.5 MG, UNKNOWN/D
     Route: 048
     Dates: start: 20110516
  2. DIOVAN [Suspect]
     Indication: HYPERTENSION
     Dosage: 40 MG, UID/QD
     Route: 048
     Dates: start: 20110113, end: 20110512
  3. BREDININ [Concomitant]
     Indication: PROPHYLAXIS AGAINST TRANSPLANT REJECTION
     Dosage: 100 MG, UID/QD
     Route: 048
     Dates: start: 20070827
  4. ADRENAL HORMONE PREPARATIONS [Concomitant]
     Indication: PROPHYLAXIS AGAINST TRANSPLANT REJECTION
     Route: 065
  5. PREDNISOLONE [Concomitant]
     Indication: IMMUNOSUPPRESSION
     Dosage: UNK
     Route: 048
     Dates: start: 20110512
  6. BREDININ [Concomitant]
     Indication: IMMUNOSUPPRESSION
  7. URINORM [Concomitant]
     Indication: HYPERURICAEMIA
     Dosage: 50 MG, UID/QD
     Route: 048
     Dates: start: 20080710, end: 20110512
  8. CLARITHROMYCIN [Interacting]
     Indication: COUGH
     Dosage: 200 MG, BID
     Route: 048
     Dates: start: 20110501, end: 20110512
  9. PREDNISOLONE [Concomitant]
     Indication: PROPHYLAXIS AGAINST TRANSPLANT REJECTION
     Dosage: 5 MG, UID/QD
     Route: 048
     Dates: start: 20060906, end: 20110511
  10. PROGRAF [Interacting]
     Indication: PROPHYLAXIS AGAINST TRANSPLANT REJECTION
     Dosage: 3.5 MG, BID
     Route: 048
     Dates: start: 20060913, end: 20110510

REACTIONS (3)
  - COUGH [None]
  - DRUG INTERACTION [None]
  - RENAL FAILURE ACUTE [None]
